FAERS Safety Report 5298028-5 (Version None)
Quarter: 2007Q2

REPORT INFORMATION
  Report Type: 
  Country: None (occurrence: None)
  Receive Date: 20070409
  Receipt Date: 20070328
  Transmission Date: 20071010
  Serious: Yes (Hospitalization)
  Sender: FDA-Public Use
  Company Number: 2006SP006452

PATIENT
  Age: 72 Year
  Sex: Male
  Weight: 45 kg

DRUGS (5)
  1. PEG-INTRON [Suspect]
     Indication: HEPATITIS C
     Dosage: 60 MCG; QW; SC
     Route: 058
     Dates: start: 20061023, end: 20061106
  2. REBETOL [Suspect]
     Indication: HEPATITIS C
     Dosage: 600 MG; QD; PO
     Route: 048
     Dates: start: 20061023, end: 20061106
  3. SULPIRIDE (CON.) [Concomitant]
  4. SELBEX (CON.) [Concomitant]
  5. HALCION (CON.) [Concomitant]

REACTIONS (5)
  - FALL [None]
  - HEADACHE [None]
  - MIOSIS [None]
  - NAUSEA [None]
  - SUBARACHNOID HAEMORRHAGE [None]
